FAERS Safety Report 10854923 (Version 2)
Quarter: 2015Q2

REPORT INFORMATION
  Report Type: Spontaneous
  Country: IT (occurrence: IT)
  Receive Date: 20150223
  Receipt Date: 20150608
  Transmission Date: 20150821
  Serious: Yes (Hospitalization)
  Sender: FDA-Public Use
  Company Number: IT-ROCHE-1537643

PATIENT
  Age: 50 Year
  Sex: Female
  Weight: 55 kg

DRUGS (4)
  1. PERJETA [Suspect]
     Active Substance: PERTUZUMAB
     Indication: BREAST CANCER METASTATIC
     Dosage: 420 MG - CONCENTRATE FOR SOLUTION FOR INFUSION
     Route: 042
     Dates: start: 20150112, end: 20150202
  2. TAXOTERE [Suspect]
     Active Substance: DOCETAXEL
     Dosage: ^80 MG^ CONCENTRATE FOR IV INFUSION + SOLVENT
     Route: 042
     Dates: start: 20150112
  3. HERCEPTIN [Suspect]
     Active Substance: TRASTUZUMAB
     Indication: BREAST CANCER METASTATIC
     Dosage: 150 MG POWDER FOR CONCENTRATE FOR SOLUTION
     Route: 042
     Dates: start: 20150112, end: 20150202
  4. TAXOTERE [Suspect]
     Active Substance: DOCETAXEL
     Indication: BREAST CANCER METASTATIC
     Dosage: ^80 MG^ CONCENTRATE FOR IV INFUSION + SOLVENT
     Route: 042
     Dates: start: 20150112, end: 20150112

REACTIONS (5)
  - Visual field defect [Unknown]
  - Febrile neutropenia [Recovered/Resolved]
  - Erythema [Unknown]
  - Throat tightness [Unknown]
  - Agitation [Unknown]

NARRATIVE: CASE EVENT DATE: 20150119
